FAERS Safety Report 13458397 (Version 1)
Quarter: 2017Q2

REPORT INFORMATION
  Report Type: Spontaneous
  Country: RU (occurrence: RU)
  Receive Date: 20170419
  Receipt Date: 20170419
  Transmission Date: 20170830
  Serious: Yes (Life-Threatening, Hospitalization)
  Sender: FDA-Public Use
  Company Number: RU-BAYER-2017-075126

PATIENT
  Age: 69 Year
  Sex: Female

DRUGS (2)
  1. ULTRAVIST [Suspect]
     Active Substance: IOPROMIDE
     Dosage: 100 ML, UNK
     Route: 013
  2. ULTRAVIST [Suspect]
     Active Substance: IOPROMIDE
     Dosage: 50 ML, UNK
     Route: 013

REACTIONS (1)
  - Nephropathy [Unknown]
